FAERS Safety Report 9549991 (Version 2)
Quarter: 2013Q3

REPORT INFORMATION
  Report Type: Spontaneous
  Country: CA (occurrence: CA)
  Receive Date: 20130924
  Receipt Date: 20130927
  Transmission Date: 20140515
  Serious: Yes (Other)
  Sender: FDA-Public Use
  Company Number: CA-GLAXOSMITHKLINE-A1039593A

PATIENT
  Sex: Female
  Weight: 80 kg

DRUGS (6)
  1. TYKERB [Suspect]
     Indication: BREAST CANCER METASTATIC
     Dosage: 1250MG PER DAY
     Route: 065
  2. PHENYTOIN [Suspect]
     Indication: PRODUCT USED FOR UNKNOWN INDICATION
     Route: 065
     Dates: end: 20130910
  3. XELODA [Suspect]
     Indication: BREAST CANCER METASTATIC
     Dosage: 650MG TWICE PER DAY
     Route: 065
  4. UNKNOWN MEDICATION [Suspect]
     Indication: PRODUCT USED FOR UNKNOWN INDICATION
     Route: 065
  5. STEROID (UNSPECIFIED) [Suspect]
     Indication: PRODUCT USED FOR UNKNOWN INDICATION
     Route: 065
  6. CARBAMAZEPINE [Concomitant]

REACTIONS (19)
  - Metastases to liver [Unknown]
  - Dyspepsia [Unknown]
  - Hypersensitivity [Unknown]
  - Rash erythematous [Recovered/Resolved]
  - Rash pruritic [Recovered/Resolved]
  - Rash papular [Recovered/Resolved]
  - Swelling [Unknown]
  - Skin exfoliation [Unknown]
  - Skin infection [Unknown]
  - Skin burning sensation [Unknown]
  - Thrombosis [Unknown]
  - Convulsion [Unknown]
  - Screaming [Unknown]
  - Crying [Unknown]
  - Pain [Unknown]
  - Anxiety [Unknown]
  - Depression [Unknown]
  - Gastrooesophageal reflux disease [Unknown]
  - Constipation [Unknown]
